FAERS Safety Report 6011886-1 (Version None)
Quarter: 2008Q4

REPORT INFORMATION
  Report Type: 
  Country: None (occurrence: None)
  Receive Date: 20081218
  Receipt Date: 20080929
  Transmission Date: 20090506
  Serious: No
  Sender: FDA-Public Use
  Company Number: US-ASTRAZENECA-2008UW20629

PATIENT
  Sex: Male

DRUGS (5)
  1. CRESTOR [Suspect]
     Route: 048
     Dates: start: 20080601
  2. ZETIA [Concomitant]
  3. NEXIUM [Concomitant]
     Route: 048
  4. FLOMAX [Concomitant]
  5. CARTIA XT [Concomitant]

REACTIONS (2)
  - CHEST PAIN [None]
  - FLATULENCE [None]
